FAERS Safety Report 4943577-X (Version None)
Quarter: 2006Q1

REPORT INFORMATION
  Report Type: 
  Country: None (occurrence: None)
  Receive Date: 20060310
  Receipt Date: 20060227
  Transmission Date: 20060701
  Serious: Yes (Disabling)
  Sender: FDA-Public Use
  Company Number: B0407563A

PATIENT
  Age: 21 Year
  Sex: Female
  Weight: 103.4 kg

DRUGS (6)
  1. PAXIL [Suspect]
     Indication: DEPRESSION
     Dosage: PER DAY/ ORAL
     Route: 048
     Dates: start: 20040910
  2. ESKALITH [Suspect]
     Indication: MANIA
     Dosage: 200 MG/SEE DOSAGE TEXT/ORAL
     Route: 048
     Dates: start: 20050502
  3. ZOLPIDEM TARTRATE [Suspect]
     Indication: INSOMNIA
     Dosage: PER DAY/ORAL
     Route: 048
     Dates: start: 20050926
  4. LOXOPROFEN (FORMULATION UNKNOWN) (LOXOPROFEN) [Suspect]
     Indication: TOOTHACHE
     Dosage: PER DAY/ ORAL
     Route: 048
     Dates: start: 20051210, end: 20051216
  5. LUDIOMIL [Concomitant]
  6. FLUOXAMINE MALEATE [Concomitant]

REACTIONS (11)
  - CHEST PAIN [None]
  - DEPRESSION [None]
  - DRUG LEVEL BELOW THERAPEUTIC [None]
  - DYSPNOEA [None]
  - EDUCATIONAL PROBLEM [None]
  - FATIGUE [None]
  - FEELING ABNORMAL [None]
  - HALLUCINATION, VISUAL [None]
  - INSOMNIA [None]
  - MALAISE [None]
  - TOOTH DISORDER [None]
